FAERS Safety Report 4378087-4 (Version None)
Quarter: 2004Q2

REPORT INFORMATION
  Report Type: 
  Country: None (occurrence: None)
  Receive Date: 20040609
  Receipt Date: 20040528
  Transmission Date: 20050107
  Serious: Yes (Hospitalization)
  Sender: FDA-Public Use
  Company Number: 200411818GDS

PATIENT
  Age: 88 Year
  Sex: Female

DRUGS (1)
  1. ASPIRIN [Suspect]
     Indication: PROPHYLAXIS
     Dosage: 100 MG, QD, ORAL
     Route: 048
     Dates: end: 20040519

REACTIONS (1)
  - CEREBRAL HAEMORRHAGE [None]
